FAERS Safety Report 9617754 (Version 3)
Quarter: 2013Q4

REPORT INFORMATION
  Report Type: Spontaneous
  Country: FR (occurrence: None)
  Receive Date: 20131009
  Receipt Date: 20131030
  Transmission Date: 20140711
  Serious: Yes (Hospitalization)
  Sender: FDA-Public Use
  Company Number: 2013FR002541

PATIENT
  Age: 60 Year
  Sex: Female
  Weight: 52 kg

DRUGS (6)
  1. PONATINIB [Suspect]
     Indication: PRODUCT USED FOR UNKNOWN INDICATION
     Route: 048
     Dates: start: 20120601
  2. ALTEISDUO [Concomitant]
  3. LERCAN [Concomitant]
  4. ASPEGIC [Concomitant]
  5. LOXEN (NICARDIPINE HYDROCHLORIDE) SLOW RELEASE [Concomitant]
  6. INIPOMP [Concomitant]

REACTIONS (4)
  - Renal artery stenosis [None]
  - Hypertension [None]
  - Coeliac artery stenosis [None]
  - Inflammation [None]
